FAERS Safety Report 7831739-3 (Version None)
Quarter: 2011Q4

REPORT INFORMATION
  Report Type: 
  Country: None (occurrence: None)
  Receive Date: 20111021
  Receipt Date: 20111008
  Transmission Date: 20120403
  Serious: Yes (Other)
  Sender: FDA-Public Use
  Company Number: DE-CELGENEUS-062-21880-11101132

PATIENT
  Sex: Male

DRUGS (2)
  1. DEXAMETHASONE [Concomitant]
     Indication: PLASMACYTOMA
     Route: 065
  2. REVLIMID [Suspect]
     Indication: PLASMACYTOMA
     Route: 048
     Dates: start: 20070101

REACTIONS (2)
  - MONOPLEGIA [None]
  - THORACIC VERTEBRAL FRACTURE [None]
